FAERS Safety Report 7954970-5 (Version None)
Quarter: 2011Q4

REPORT INFORMATION
  Report Type: 
  Country: None (occurrence: None)
  Receive Date: 20111202
  Receipt Date: 20111126
  Transmission Date: 20120403
  Serious: Yes (Hospitalization)
  Sender: FDA-Public Use
  Company Number: US-BAYER-201027397NA

PATIENT
  Age: 51 Year
  Sex: Female
  Weight: 81.633 kg

DRUGS (8)
  1. ALLEGRA-D 12 HOUR [Concomitant]
  2. YAZ [Suspect]
     Indication: PRODUCT USED FOR UNKNOWN INDICATION
     Dosage: UNK
     Route: 048
     Dates: start: 19980101, end: 20060101
  3. DROSPIRENONE AND ETHINYL ESTRADIOL [Suspect]
     Indication: CONTRACEPTION
     Dosage: UNK
     Route: 048
     Dates: start: 20080701
  4. YASMIN [Suspect]
     Indication: CONTRACEPTION
     Route: 048
     Dates: start: 20060201, end: 20080701
  5. NASONEX [Concomitant]
  6. YASMIN [Suspect]
     Dosage: UNK
     Route: 048
     Dates: start: 20060501, end: 20080701
  7. POTASSIUM CHLORIDE [Concomitant]
     Indication: HYPOKALAEMIA
  8. HYDROCHLOROTHIAZIDE [Concomitant]

REACTIONS (3)
  - DEEP VEIN THROMBOSIS [None]
  - PULMONARY EMBOLISM [None]
  - LOSS OF CONSCIOUSNESS [None]
